FAERS Safety Report 7262878-6 (Version None)
Quarter: 2011Q1

REPORT INFORMATION
  Report Type: 
  Country: None (occurrence: None)
  Receive Date: 20110130
  Receipt Date: 20100914
  Transmission Date: 20110831
  Serious: No
  Sender: FDA-Public Use
  Company Number: US-ABBOTT-10P-163-0670919-00

PATIENT
  Age: 53 Year
  Sex: Female

DRUGS (8)
  1. PLAQUENIL [Concomitant]
     Indication: RHEUMATOID ARTHRITIS
     Route: 048
  2. ZOLOFT [Concomitant]
     Indication: ANXIETY
     Route: 048
  3. HUMIRA [Suspect]
     Indication: RHEUMATOID ARTHRITIS
     Dates: start: 20090101
  4. PERCOCET [Concomitant]
     Indication: PAIN
     Dosage: 5/325 MG
     Route: 048
  5. ULTRAM [Concomitant]
     Indication: PAIN
     Route: 048
  6. ARAVA [Concomitant]
     Indication: CARDIAC DISORDER
     Route: 048
  7. PREDNISONE [Concomitant]
     Indication: RHEUMATOID ARTHRITIS
     Route: 048
  8. BYSTOLIC [Concomitant]
     Indication: HEART RATE IRREGULAR
     Route: 048

REACTIONS (5)
  - MUSCULOSKELETAL DISCOMFORT [None]
  - WEIGHT BEARING DIFFICULTY [None]
  - RHEUMATOID ARTHRITIS [None]
  - DRUG DOSE OMISSION [None]
  - MOBILITY DECREASED [None]
